FAERS Safety Report 8346783-X (Version None)
Quarter: 2012Q2

REPORT INFORMATION
  Report Type: 
  Country: None (occurrence: None)
  Receive Date: 20120509
  Receipt Date: 20120504
  Transmission Date: 20120825
  Serious: Yes (Other)
  Sender: FDA-Public Use
  Company Number: US-PFIZER INC-2012110378

PATIENT
  Sex: Male

DRUGS (12)
  1. INLYTA [Suspect]
     Indication: RENAL CELL CARCINOMA
     Dosage: 5 MG, 2X/DAY
     Route: 048
     Dates: end: 20120331
  2. PROSCAR [Concomitant]
     Dosage: UNK
  3. MULTI-VITAMINS [Concomitant]
     Dosage: UNK
  4. LOSARTAN [Concomitant]
     Dosage: UNK
  5. ONGLYZA [Concomitant]
     Dosage: UNK
  6. MIRALAX [Concomitant]
     Dosage: UNK
  7. UROXATRAL [Concomitant]
     Dosage: UNK
  8. LEVOTHYROXINE [Concomitant]
     Dosage: UNK
  9. DOXEPIN [Concomitant]
     Dosage: UNK
  10. GERITOL [Concomitant]
     Dosage: UNK
  11. PRILOSEC [Concomitant]
     Dosage: UNK
  12. LIPITOR [Concomitant]
     Dosage: UNK

REACTIONS (3)
  - HEADACHE [None]
  - VISUAL IMPAIRMENT [None]
  - CONVULSION [None]
